FAERS Safety Report 5570729-0 (Version None)
Quarter: 2007Q4

REPORT INFORMATION
  Report Type: 
  Country: None (occurrence: None)
  Receive Date: 20071219
  Receipt Date: 20071214
  Transmission Date: 20080405
  Serious: Yes (Death, Hospitalization)
  Sender: FDA-Public Use
  Company Number: T07-USA-05558-01

PATIENT
  Age: 73 Year
  Sex: Female
  Weight: 47.1741 kg

DRUGS (4)
  1. MEMANTINE HCL [Suspect]
     Indication: DEMENTIA ALZHEIMER'S TYPE
     Dosage: 28 MG QD PO
     Route: 048
     Dates: start: 20061214, end: 20071012
  2. AMLODIPINE [Concomitant]
  3. HYDROCHLOROTHIAZIDE [Concomitant]
  4. OMEPRAZOLE [Concomitant]

REACTIONS (6)
  - CARDIO-RESPIRATORY ARREST [None]
  - CORONARY ARTERY DISEASE [None]
  - LARGE INTESTINE PERFORATION [None]
  - MYOCARDIAL INFARCTION [None]
  - PERITONITIS [None]
  - SEPTIC SHOCK [None]
